FAERS Safety Report 6497216-X (Version None)
Quarter: 2009Q4

REPORT INFORMATION
  Report Type: 
  Country: None (occurrence: None)
  Receive Date: 20091215
  Receipt Date: 20090804
  Transmission Date: 20100525
  Serious: No
  Sender: FDA-Public Use
  Company Number: A0793526A

PATIENT
  Age: 75 Year
  Sex: Male

DRUGS (6)
  1. AVODART [Suspect]
     Indication: BENIGN PROSTATIC HYPERPLASIA
     Dosage: 1CAP PER DAY
     Route: 048
     Dates: start: 20090101, end: 20090501
  2. LIPITOR [Concomitant]
  3. CARBAMAZEPINE [Concomitant]
  4. TRILEPTAL [Concomitant]
  5. BLOOD PRESSURE MED [Concomitant]
  6. OTHER MEDICATIONS [Concomitant]

REACTIONS (3)
  - BREAST SWELLING [None]
  - PAIN [None]
  - TENDERNESS [None]
